FAERS Safety Report 9131977 (Version 1)
Quarter: 2013Q1

REPORT INFORMATION
  Report Type: Report from Study
  Country: US (occurrence: US)
  Receive Date: 20130301
  Receipt Date: 20130301
  Transmission Date: 20140127
  Serious: No
  Sender: FDA-Public Use
  Company Number: US-MYLANLABS-2012S1025402

PATIENT
  Age: 54 Year
  Sex: Female
  Weight: 73.94 kg

DRUGS (4)
  1. AMNESTEEM CAPSULES [Suspect]
     Indication: ACNE
     Route: 048
     Dates: start: 201210, end: 20121210
  2. CALCIUM [Concomitant]
  3. TOVIAZ [Concomitant]
  4. TOBREX [Concomitant]

REACTIONS (5)
  - Lip dry [Not Recovered/Not Resolved]
  - Dry eye [Not Recovered/Not Resolved]
  - Dry skin [Not Recovered/Not Resolved]
  - Otorrhoea [Not Recovered/Not Resolved]
  - Myalgia [Not Recovered/Not Resolved]
